FAERS Safety Report 7273742-0 (Version None)
Quarter: 2011Q1

REPORT INFORMATION
  Report Type: 
  Country: None (occurrence: None)
  Receive Date: 20110203
  Receipt Date: 20110124
  Transmission Date: 20110831
  Serious: Yes (Life-Threatening, Hospitalization)
  Sender: FDA-Public Use
  Company Number: US-BAXTER-2011BH000536

PATIENT
  Age: 79 Year
  Sex: Male
  Weight: 76 kg

DRUGS (1)
  1. DIANEAL [Suspect]
     Indication: PERITONEAL DIALYSIS
     Route: 033
     Dates: start: 20101127

REACTIONS (2)
  - CORONARY ARTERY DISEASE [None]
  - CHEST PAIN [None]
